FAERS Safety Report 7259223-9 (Version None)
Quarter: 2011Q1

REPORT INFORMATION
  Report Type: 
  Country: None (occurrence: None)
  Receive Date: 20110129
  Receipt Date: 20100813
  Transmission Date: 20110831
  Serious: No
  Sender: FDA-Public Use
  Company Number: US-ABBOTT-10P-163-0663949-00

PATIENT
  Age: 57 Year
  Sex: Female

DRUGS (10)
  1. MULTI-VITAMIN [Concomitant]
     Indication: PRODUCT USED FOR UNKNOWN INDICATION
  2. PRAVASTATIN [Concomitant]
     Indication: PRODUCT USED FOR UNKNOWN INDICATION
     Dosage: AT NIGHT
  3. HUMIRA [Suspect]
     Indication: PYODERMA GANGRENOSUM
     Dates: start: 20100811
  4. HYDROCHLOROTHIAZIDE [Concomitant]
     Indication: PRODUCT USED FOR UNKNOWN INDICATION
  5. DAPSONE [Concomitant]
     Indication: PRODUCT USED FOR UNKNOWN INDICATION
  6. DEXAMETHASONE [Concomitant]
     Indication: ACUTE FEBRILE NEUTROPHILIC DERMATOSIS
  7. DEXAMETHASONE [Concomitant]
     Indication: PYODERMA
  8. MELATONIN [Concomitant]
     Indication: INSOMNIA
     Dosage: AT NIGHT
  9. OXYCODONE [Concomitant]
     Indication: PRODUCT USED FOR UNKNOWN INDICATION
  10. TYLENOL PM [Concomitant]
     Indication: PRODUCT USED FOR UNKNOWN INDICATION

REACTIONS (1)
  - EAR INFECTION [None]
